FAERS Safety Report 6177932-X (Version None)
Quarter: 2009Q2

REPORT INFORMATION
  Report Type: 
  Country: None (occurrence: None)
  Receive Date: 20090504
  Receipt Date: 20090422
  Transmission Date: 20091009
  Serious: Yes (Hospitalization, Disabling, Other)
  Sender: FDA-Public Use
  Company Number: US-MERCK-0607USA04110

PATIENT
  Age: 56 Year
  Sex: Female
  Weight: 61 kg

DRUGS (8)
  1. FOSAMAX [Suspect]
     Indication: OSTEOPENIA
     Route: 048
     Dates: start: 20030806, end: 20060706
  2. FOSAMAX [Suspect]
     Route: 048
     Dates: start: 19950101, end: 19960101
  3. FOSAMAX [Suspect]
     Indication: MENOPAUSE
     Route: 048
     Dates: start: 20030806, end: 20060706
  4. FOSAMAX [Suspect]
     Route: 048
     Dates: start: 19950101, end: 19960101
  5. CALCIUM (UNSPECIFIED) [Concomitant]
     Route: 065
  6. METAMUCIL [Concomitant]
     Route: 065
  7. FLONASE [Concomitant]
     Route: 065
     Dates: start: 20020201
  8. PAXIL [Concomitant]
     Indication: DEPRESSION
     Route: 065
     Dates: start: 19981101

REACTIONS (26)
  - ADVERSE EVENT [None]
  - ANXIETY [None]
  - COLITIS MICROSCOPIC [None]
  - DIVERTICULUM INTESTINAL [None]
  - FATIGUE [None]
  - GASTROINTESTINAL DISORDER [None]
  - HIATUS HERNIA [None]
  - HYPERSENSITIVITY [None]
  - NASAL POLYPS [None]
  - NASAL SEPTUM DEVIATION [None]
  - OESOPHAGITIS [None]
  - ORAL TORUS [None]
  - OSTEOARTHRITIS [None]
  - OSTEONECROSIS [None]
  - OSTEOPOROSIS [None]
  - PULMONARY EMBOLISM [None]
  - RASH [None]
  - SINUS POLYP [None]
  - SINUSITIS [None]
  - STRESS [None]
  - SUICIDAL IDEATION [None]
  - TIBIA FRACTURE [None]
  - TINNITUS [None]
  - VOCAL CORD POLYP [None]
  - WHITE BLOOD CELL COUNT DECREASED [None]
  - WRIST FRACTURE [None]
